FAERS Safety Report 16826418 (Version 1)
Quarter: 2019Q3

REPORT INFORMATION
  Report Type: Spontaneous
  Country: KW (occurrence: KW)
  Receive Date: 20190919
  Receipt Date: 20190919
  Transmission Date: 20191005
  Serious: Yes (Other)
  Sender: FDA-Public Use
  Company Number: KW-PFIZER INC-2019399348

PATIENT

DRUGS (1)
  1. ECALTA [Suspect]
     Active Substance: ANIDULAFUNGIN
     Dosage: UNK

REACTIONS (1)
  - Bradycardia [Recovered/Resolved]
